FAERS Safety Report 9619246 (Version 2)
Quarter: 2013Q4

REPORT INFORMATION
  Report Type: Spontaneous
  Country: US (occurrence: US)
  Receive Date: 20131014
  Receipt Date: 20131108
  Transmission Date: 20140711
  Serious: Yes (Death, Hospitalization)
  Sender: FDA-Public Use
  Company Number: US-TARO-2013P1019935

PATIENT
  Age: 70 Year
  Sex: Female
  Weight: 72.58 kg

DRUGS (5)
  1. WARFARIN SODIUM TABLETS USP 5MG [Suspect]
     Route: 048
     Dates: start: 2000
  2. NEURONTIN (UNKNOWN) [Suspect]
     Indication: NEUROPATHY PERIPHERAL
  3. PRAVASTATIN (UNKNOWN) [Suspect]
     Indication: BLOOD CHOLESTEROL
  4. ?ANY SODIUM BASED MEDICATION? (UNKNOWN) [Suspect]
  5. PEPTO-BISMOL [Suspect]

REACTIONS (7)
  - Feeling abnormal [Unknown]
  - Blood cholesterol increased [Unknown]
  - Frustration [Unknown]
  - Small intestinal obstruction [Unknown]
  - Septic shock [Fatal]
  - Neuropathy peripheral [Fatal]
  - Abdominal strangulated hernia [Unknown]
